FAERS Safety Report 18670825 (Version 1)
Quarter: 2020Q4

REPORT INFORMATION
  Report Type: Spontaneous
  Country: US (occurrence: US)
  Receive Date: 20201228
  Receipt Date: 20201228
  Transmission Date: 20210114
  Serious: No
  Sender: FDA-Public Use
  Company Number: US-ELI_LILLY_AND_COMPANY-US202012012861

PATIENT
  Age: 34 Year
  Sex: Female

DRUGS (4)
  1. LANTUS [Concomitant]
     Active Substance: INSULIN GLARGINE
     Indication: GESTATIONAL DIABETES
     Dosage: UNK
     Dates: start: 200802
  2. HUMALOG [Suspect]
     Active Substance: INSULIN LISPRO
     Indication: GESTATIONAL DIABETES
     Dosage: 300-400 U, DAILY
     Route: 058
     Dates: start: 200802
  3. NOVOLOG [Concomitant]
     Active Substance: INSULIN ASPART
     Indication: GESTATIONAL DIABETES
     Dosage: UNK
     Dates: start: 200802
  4. HUMALOG [Suspect]
     Active Substance: INSULIN LISPRO
     Indication: GESTATIONAL DIABETES
     Dosage: 300-400 U, DAILY
     Route: 058
     Dates: start: 200802

REACTIONS (1)
  - Maternal exposure during pregnancy [Recovered/Resolved]

NARRATIVE: CASE EVENT DATE: 200802
